FAERS Safety Report 6740108-9 (Version None)
Quarter: 2010Q2

REPORT INFORMATION
  Report Type: 
  Country: None (occurrence: None)
  Receive Date: 20100525
  Receipt Date: 20100520
  Transmission Date: 20101027
  Serious: Yes (Hospitalization, Other)
  Sender: FDA-Public Use
  Company Number: US-PERRIGO-10US009859

PATIENT
  Sex: Male
  Weight: 74.83 kg

DRUGS (2)
  1. IBUPROFEN 200MG 647 [Suspect]
     Indication: MUSCULOSKELETAL PAIN
     Dosage: 400 MG, SINGLE
     Route: 048
     Dates: start: 20100422, end: 20100422
  2. IBUPROFEN 200MG 647 [Suspect]
     Dosage: 400 MG, SINGLE
     Route: 048
     Dates: start: 20100515, end: 20100515

REACTIONS (6)
  - GENERALISED ERYTHEMA [None]
  - HEART RATE INCREASED [None]
  - OEDEMA PERIPHERAL [None]
  - SWELLING FACE [None]
  - URTICARIA [None]
  - WHITE BLOOD CELL COUNT INCREASED [None]
